FAERS Safety Report 4825136-2 (Version None)
Quarter: 2005Q4

REPORT INFORMATION
  Report Type: 
  Country: None (occurrence: None)
  Receive Date: 20051109
  Receipt Date: 20051109
  Transmission Date: 20060501
  Serious: Yes (Life-Threatening, Hospitalization)
  Sender: FDA-Public Use
  Company Number: None

PATIENT
  Age: 54 Year
  Sex: Female
  Weight: 117.9352 kg

DRUGS (9)
  1. OXALIPLATIN 100 MG [Suspect]
     Indication: COLON CANCER METASTATIC
     Dosage: 170 MG IV Q 2 WKS (PREV TX 1/31-5/16)[ RESTARTED THERAPY 9/26 + 10/10
     Route: 042
     Dates: start: 20050131, end: 20050516
  2. OXALIPLATIN 100 MG [Suspect]
     Indication: METASTASES TO LIVER
     Dosage: 170 MG IV Q 2 WKS (PREV TX 1/31-5/16)[ RESTARTED THERAPY 9/26 + 10/10
     Route: 042
     Dates: start: 20050131, end: 20050516
  3. OXALIPLATIN 100 MG [Suspect]
     Indication: COLON CANCER METASTATIC
     Dosage: 170 MG IV Q 2 WKS (PREV TX 1/31-5/16)[ RESTARTED THERAPY 9/26 + 10/10
     Route: 042
     Dates: start: 20050926
  4. OXALIPLATIN 100 MG [Suspect]
     Indication: METASTASES TO LIVER
     Dosage: 170 MG IV Q 2 WKS (PREV TX 1/31-5/16)[ RESTARTED THERAPY 9/26 + 10/10
     Route: 042
     Dates: start: 20050926
  5. OXALIPLATIN 100 MG [Suspect]
     Indication: COLON CANCER METASTATIC
     Dosage: 170 MG IV Q 2 WKS (PREV TX 1/31-5/16)[ RESTARTED THERAPY 9/26 + 10/10
     Route: 042
     Dates: start: 20051010
  6. OXALIPLATIN 100 MG [Suspect]
     Indication: METASTASES TO LIVER
     Dosage: 170 MG IV Q 2 WKS (PREV TX 1/31-5/16)[ RESTARTED THERAPY 9/26 + 10/10
     Route: 042
     Dates: start: 20051010
  7. AVASTIN [Concomitant]
  8. FLUOROURACIL [Concomitant]
  9. LEUCOVORIN [Concomitant]

REACTIONS (13)
  - BLOOD PRESSURE DECREASED [None]
  - DIZZINESS [None]
  - DYSPNOEA [None]
  - FLUSHING [None]
  - HYPOTENSION [None]
  - INFUSION RELATED REACTION [None]
  - MALAISE [None]
  - NAUSEA [None]
  - RESTLESSNESS [None]
  - SKIN WARM [None]
  - TACHYCARDIA [None]
  - VISUAL DISTURBANCE [None]
  - YAWNING [None]
